FAERS Safety Report 14370140 (Version 1)
Quarter: 2018Q1

REPORT INFORMATION
  Report Type: Spontaneous
  Country: US (occurrence: US)
  Receive Date: 20180110
  Receipt Date: 20180110
  Transmission Date: 20180509
  Serious: No
  Sender: FDA-Public Use
  Company Number: US-ASTRAZENECA-2018SE02663

PATIENT
  Sex: Male
  Weight: 86.2 kg

DRUGS (1)
  1. FASENRA [Suspect]
     Active Substance: BENRALIZUMAB
     Indication: ASTHMA
     Dosage: 30 MG, EVERY 4 WEEKS FOR THE FIRST 3 MONTHS, THEN EVERY 8 WEEKS
     Route: 058
     Dates: start: 20171202

REACTIONS (3)
  - Headache [Unknown]
  - Feeling cold [Unknown]
  - Pyrexia [Unknown]
